FAERS Safety Report 14801011 (Version 1)
Quarter: 2018Q2

REPORT INFORMATION
  Report Type: Spontaneous
  Country: SE (occurrence: SE)
  Receive Date: 20180424
  Receipt Date: 20180424
  Transmission Date: 20180711
  Serious: Yes (Other)
  Sender: FDA-Public Use
  Company Number: PHHY2018SE072212

PATIENT
  Age: 71 Year
  Sex: Male
  Weight: 116 kg

DRUGS (2)
  1. BICALUTAMIDE. [Suspect]
     Active Substance: BICALUTAMIDE
     Indication: PROSTATE CANCER
     Route: 065
  2. SUPREFACT [Suspect]
     Active Substance: BUSERELIN
     Indication: PROSTATE CANCER
     Route: 065

REACTIONS (6)
  - Type 2 diabetes mellitus [Unknown]
  - Hot flush [Unknown]
  - Weight increased [Recovering/Resolving]
  - Breast enlargement [Unknown]
  - Fat tissue increased [Unknown]
  - Drug ineffective [Unknown]
